FAERS Safety Report 13893916 (Version 4)
Quarter: 2021Q1

REPORT INFORMATION
  Report Type: Spontaneous
  Country: US (occurrence: US)
  Receive Date: 20170822
  Receipt Date: 20210112
  Transmission Date: 20210419
  Serious: Yes (Hospitalization)
  Sender: FDA-Public Use
  Company Number: US-PFIZER INC-2017159042

PATIENT
  Age: 60 Year
  Sex: Male

DRUGS (2)
  1. GENOTROPIN [Suspect]
     Active Substance: SOMATROPIN
     Dosage: 0.2 MG, DAILY
     Dates: start: 20140308
  2. GENOTROPIN [Suspect]
     Active Substance: SOMATROPIN
     Dosage: 5.8 MG AT 0.2 INJECTIONS, DAILY

REACTIONS (3)
  - Product prescribing error [Unknown]
  - Influenza [Unknown]
  - Joint injury [Unknown]
